FAERS Safety Report 13528815 (Version 4)
Quarter: 2017Q3

REPORT INFORMATION
  Report Type: Report from Study
  Country: US (occurrence: US)
  Receive Date: 20170509
  Receipt Date: 20170707
  Transmission Date: 20171127
  Serious: Yes (Life-Threatening, Hospitalization, Disabling, Other)
  Sender: FDA-Public Use
  Company Number: US-009507513-1705USA001794

PATIENT
  Age: 70 Year
  Sex: Female
  Weight: 61.22 kg

DRUGS (4)
  1. HALAVEN [Concomitant]
     Active Substance: ERIBULIN MESYLATE
     Indication: BREAST CANCER METASTATIC
     Dosage: 1.9 MG, UNK
     Route: 042
     Dates: start: 20170301, end: 20170421
  2. ERIBULIN MESYLATE [Concomitant]
     Active Substance: ERIBULIN MESYLATE
     Dosage: 3 OF 9 CYCLES
     Dates: start: 20170301, end: 20170504
  3. PRINIVIL [Concomitant]
     Active Substance: LISINOPRIL
     Indication: HYPERTENSION
  4. KEYTRUDA [Suspect]
     Active Substance: PEMBROLIZUMAB
     Indication: BREAST CANCER METASTATIC
     Dosage: 126 MG, EVERY 3 WEEKS
     Route: 042
     Dates: start: 20170301, end: 20170414

REACTIONS (18)
  - Malignant neoplasm progression [Unknown]
  - Pleural thickening [Unknown]
  - Lung infiltration [Recovering/Resolving]
  - Hyperhidrosis [Unknown]
  - Asthenia [Unknown]
  - Product use in unapproved indication [Unknown]
  - Pulmonary toxicity [Unknown]
  - Cough [Recovering/Resolving]
  - Arthralgia [Unknown]
  - Malaise [Recovered/Resolved]
  - Pneumonitis [Not Recovered/Not Resolved]
  - Hypoxia [Unknown]
  - Fatigue [Recovering/Resolving]
  - Anxiety [Unknown]
  - Drug ineffective [Unknown]
  - Dyspnoea [Recovering/Resolving]
  - Nervousness [Unknown]
  - Heart sounds abnormal [Unknown]

NARRATIVE: CASE EVENT DATE: 2017
